FAERS Safety Report 5757269-0 (Version None)
Quarter: 2008Q2

REPORT INFORMATION
  Report Type: 
  Country: None (occurrence: None)
  Receive Date: 20080603
  Receipt Date: 20080520
  Transmission Date: 20081010
  Serious: Yes (Hospitalization, Other)
  Sender: FDA-Public Use
  Company Number: US-ELI_LILLY_AND_COMPANY-US200709004055

PATIENT
  Sex: Female

DRUGS (11)
  1. FORTEO [Suspect]
     Indication: OSTEOPOROSIS
     Dosage: UNK, UNK
     Dates: start: 20070207
  2. FORTEO [Suspect]
     Dates: start: 20070207
  3. EVISTA [Suspect]
  4. CALCIUM WITH VITAMIN D [Concomitant]
  5. MULTI-VITAMIN [Concomitant]
  6. CELEBREX [Concomitant]
  7. ALTACE [Concomitant]
     Dosage: UNK, AS NEEDED
  8. LEXAPRO [Concomitant]
  9. GLUCOSAMINE W/CHONDROITIN [Concomitant]
  10. PREVACID [Concomitant]
  11. CALCIUM [Concomitant]

REACTIONS (5)
  - ANKLE FRACTURE [None]
  - ARTHRALGIA [None]
  - CERVICAL VERTEBRAL FRACTURE [None]
  - JOINT SWELLING [None]
  - ROAD TRAFFIC ACCIDENT [None]
